FAERS Safety Report 14385573 (Version 2)
Quarter: 2018Q4

REPORT INFORMATION
  Report Type: Spontaneous
  Country: US (occurrence: US)
  Receive Date: 20180115
  Receipt Date: 20181102
  Transmission Date: 20190204
  Serious: Yes (Other)
  Sender: FDA-Public Use
  Company Number: US-SA-2016SA234140

PATIENT
  Age: 66 Year
  Sex: Female
  Weight: 74.84 kg

DRUGS (10)
  1. TAXOTERE [Suspect]
     Active Substance: DOCETAXEL
     Indication: INVASIVE DUCTAL BREAST CARCINOMA
     Dosage: 140 MG, Q3W
     Route: 042
     Dates: start: 20110817, end: 20110817
  2. TAXOTERE [Suspect]
     Active Substance: DOCETAXEL
     Dosage: 140 MG, Q3W
     Route: 042
     Dates: start: 20111021, end: 20111021
  3. HERCEPTIN [Concomitant]
     Active Substance: TRASTUZUMAB
     Dosage: 438 MG,UNK
     Route: 065
     Dates: start: 20111201, end: 20111201
  4. ZOCOR [Concomitant]
     Active Substance: SIMVASTATIN
  5. HERCEPTIN [Concomitant]
     Active Substance: TRASTUZUMAB
     Dosage: 438 MG,UNK
     Route: 065
     Dates: start: 20111021, end: 20111021
  6. CYTOXAN [Concomitant]
     Active Substance: CYCLOPHOSPHAMIDE
  7. DOXYCYCLINE HYDROCHLORIDE [Concomitant]
     Active Substance: DOXYCYCLINE HYDROCHLORIDE
  8. HERCEPTIN [Concomitant]
     Active Substance: TRASTUZUMAB
     Dosage: 438 MG,UNK
     Route: 065
     Dates: start: 20111110, end: 20111110
  9. HERCEPTIN [Concomitant]
     Active Substance: TRASTUZUMAB
     Dosage: 438 MG,UNK
     Route: 065
     Dates: start: 20110928, end: 20110928
  10. ADRIAMYCIN [Concomitant]
     Active Substance: DOXORUBICIN HYDROCHLORIDE

REACTIONS (5)
  - Anxiety [Unknown]
  - Pain [Unknown]
  - Alopecia [Recovering/Resolving]
  - Impaired quality of life [Unknown]
  - Emotional distress [Unknown]

NARRATIVE: CASE EVENT DATE: 201205
